FAERS Safety Report 26086701 (Version 1)
Quarter: 2025Q4

REPORT INFORMATION
  Report Type: Spontaneous
  Country: SA (occurrence: SA)
  Receive Date: 20251125
  Receipt Date: 20251125
  Transmission Date: 20260117
  Serious: Yes (Hospitalization)
  Sender: BAXTER
  Company Number: SA-MLMSERVICE-20251111-PI705290-00145-1

PATIENT
  Age: 36 Year
  Sex: Female

DRUGS (7)
  1. SEVOFLURANE [Suspect]
     Active Substance: SEVOFLURANE
     Indication: Maintenance of anaesthesia
     Dosage: 2% ( SEVOFLURANE 2% IN COMBINATION WITH MULTIMODAL ANALGESIA)
     Route: 065
  2. PROPOFOL [Suspect]
     Active Substance: PROPOFOL
     Indication: Induction of anaesthesia
     Dosage: INDUCED WITH PROPOFOL 2 MG/KG
     Route: 065
  3. FENTANYL [Suspect]
     Active Substance: FENTANYL
     Indication: Induction of anaesthesia
     Dosage: INDUCED WITH FENTANYL 1 ?G/KG
     Route: 065
  4. ROCURONIUM [Suspect]
     Active Substance: ROCURONIUM BROMIDE
     Indication: Induction of anaesthesia
     Dosage: INDUCED WITH  ROCURONIUM 0.9 MG/KG
     Route: 065
  5. MEPERIDINE [Concomitant]
     Active Substance: MEPERIDINE
     Indication: Post procedural complication
  6. ACETAMINOPHEN [Concomitant]
     Active Substance: ACETAMINOPHEN
     Indication: Analgesic therapy
  7. DEXAMETHASONE [Concomitant]
     Active Substance: DEXAMETHASONE
     Indication: Analgesic therapy

REACTIONS (5)
  - Sensorimotor disorder [Recovered/Resolved]
  - Paraplegia [Recovered/Resolved]
  - Hypoaesthesia [Recovered/Resolved]
  - Oedema [Recovered/Resolved]
  - Muscular weakness [Recovered/Resolved]
